FAERS Safety Report 20170067 (Version 1)
Quarter: 2021Q4

REPORT INFORMATION
  Report Type: Spontaneous
  Country: US (occurrence: None)
  Receive Date: 20211209
  Receipt Date: 20211209
  Transmission Date: 20220303
  Serious: Yes (Death)
  Sender: FDA-Public Use
  Company Number: None

PATIENT
  Age: 45 Year
  Sex: Female

DRUGS (18)
  1. VELTASSA [Suspect]
     Active Substance: PATIROMER
     Indication: Hyperkalaemia
     Dates: start: 20211020
  2. LOSARTAN [Suspect]
     Active Substance: LOSARTAN
  3. EPOGEN [Concomitant]
     Active Substance: ERYTHROPOIETIN
  4. ADVAIR [Concomitant]
  5. AMLODIPINE [Concomitant]
     Active Substance: AMLODIPINE BESYLATE
  6. DRISDOL [Concomitant]
     Active Substance: ERGOCALCIFEROL
  7. EMLA [Concomitant]
     Active Substance: LIDOCAINE\PRILOCAINE
  8. FLUTICASONE [Concomitant]
  9. GABAPENTIN [Concomitant]
     Active Substance: GABAPENTIN
  10. HECTORAL [Concomitant]
  11. LEVOTHYROXINE [Concomitant]
     Active Substance: LEVOTHYROXINE
  12. LOSARTAN [Concomitant]
     Active Substance: LOSARTAN
  13. METOPROLOL SUCCINATE [Concomitant]
     Active Substance: METOPROLOL SUCCINATE
  14. RENVELA [Concomitant]
     Active Substance: SEVELAMER CARBONATE
  15. ROSUVASTATIN [Concomitant]
     Active Substance: ROSUVASTATIN
  16. VENOFER [Concomitant]
     Active Substance: IRON SUCROSE
  17. VENTOLIN HFA [Concomitant]
     Active Substance: ALBUTEROL SULFATE
  18. ZOLOFT [Concomitant]
     Active Substance: SERTRALINE HYDROCHLORIDE

REACTIONS (2)
  - Blood potassium increased [None]
  - Cardiac arrest [None]
